FAERS Safety Report 25398642 (Version 1)
Quarter: 2025Q2

REPORT INFORMATION
  Report Type: Report from Study
  Country: US (occurrence: US)
  Receive Date: 20250604
  Receipt Date: 20250604
  Transmission Date: 20250717
  Serious: Yes (Other)
  Sender: MALLINCKRODT
  Company Number: US-MALLINCKRODT-MNK202502504

PATIENT
  Sex: Male

DRUGS (5)
  1. CORTICOTROPIN [Suspect]
     Active Substance: CORTICOTROPIN
     Indication: Rheumatoid arthritis
  2. RINVOQ [Concomitant]
     Active Substance: UPADACITINIB
  3. DOXYCYCLINE [Concomitant]
     Active Substance: DOXYCYCLINE
  4. ALEVE [Concomitant]
     Active Substance: NAPROXEN SODIUM
     Indication: Arthritis
  5. TYLENOL ARTHRITIS PAIN [Concomitant]
     Active Substance: ACETAMINOPHEN
     Indication: Arthritis

REACTIONS (14)
  - COVID-19 [Unknown]
  - Immunodeficiency [Unknown]
  - Adverse drug reaction [Unknown]
  - Pallor [Unknown]
  - Feeling abnormal [Unknown]
  - Fall [Unknown]
  - Tendon injury [Unknown]
  - Arthralgia [Unknown]
  - Injection site discharge [Unknown]
  - Malaise [Unknown]
  - Fatigue [Unknown]
  - Weight increased [Unknown]
  - Acne [Unknown]
  - Underdose [Unknown]
